FAERS Safety Report 6138900-7 (Version None)
Quarter: 2009Q1

REPORT INFORMATION
  Report Type: 
  Country: None (occurrence: None)
  Receive Date: 20090331
  Receipt Date: 20090323
  Transmission Date: 20090719
  Serious: No
  Sender: FDA-Public Use
  Company Number: US-B.I. PHARMACEUTICALS,INC./RIDGEFIELD-2009-BP-03656BP

PATIENT
  Sex: Female

DRUGS (3)
  1. SPIRIVA [Suspect]
     Dosage: 18MCG
     Route: 055
     Dates: start: 20040101
  2. PROAIR HFA [Concomitant]
  3. SYMBICORT [Concomitant]

REACTIONS (3)
  - COUGH [None]
  - DYSPHONIA [None]
  - ULCER [None]
